FAERS Safety Report 5445641-8 (Version None)
Quarter: 2007Q3

REPORT INFORMATION
  Report Type: 
  Country: None (occurrence: None)
  Receive Date: 20070906
  Receipt Date: 20070829
  Transmission Date: 20080115
  Serious: Yes (Other)
  Sender: FDA-Public Use
  Company Number: MX-MERCK-0611MEX00044

PATIENT
  Sex: Female

DRUGS (1)
  1. CLINORIL [Suspect]
     Route: 048
     Dates: start: 20060907, end: 20061024

REACTIONS (5)
  - ABDOMINAL PAIN UPPER [None]
  - ADVERSE EVENT [None]
  - NAUSEA [None]
  - PREGNANCY [None]
  - VOMITING [None]
